FAERS Safety Report 10024812 (Version 1)
Quarter: 2014Q1

REPORT INFORMATION
  Report Type: Spontaneous
  Country: US (occurrence: None)
  Receive Date: 20140319
  Receipt Date: 20140319
  Transmission Date: 20141002
  Serious: Yes (Other)
  Sender: FDA-Public Use
  Company Number: None

PATIENT
  Age: 68 Year
  Sex: Male
  Weight: 97.3 kg

DRUGS (1)
  1. BEVACIZUMAB [Suspect]
     Indication: NEOPLASM MALIGNANT
     Dosage: OTHER
     Route: 042
     Dates: start: 20130130, end: 20130403

REACTIONS (3)
  - Thrombocytopenia [None]
  - Transient ischaemic attack [None]
  - Cerebrovascular accident [None]
